FAERS Safety Report 12837274 (Version 1)
Quarter: 2016Q4

REPORT INFORMATION
  Report Type: Spontaneous
  Country: JP (occurrence: JP)
  Receive Date: 20161011
  Receipt Date: 20161011
  Transmission Date: 20170207
  Serious: Yes (Other)
  Sender: FDA-Public Use
  Company Number: JP-GILEAD-2016-0237440

PATIENT
  Age: 77 Year
  Sex: Male

DRUGS (2)
  1. HEPSERA [Suspect]
     Active Substance: ADEFOVIR DIPIVOXIL
     Indication: HEPATITIS B
     Dosage: UNK
     Route: 048
  2. VITAMIN D                          /00107901/ [Concomitant]
     Active Substance: ERGOCALCIFEROL
     Dosage: 0.5 UNKNOWN, UNK

REACTIONS (7)
  - Osteomalacia [Unknown]
  - Acidosis [Unknown]
  - Pain [Recovering/Resolving]
  - Fanconi syndrome acquired [Unknown]
  - Arthralgia [Unknown]
  - Hypophosphataemia [Unknown]
  - Renal tubular necrosis [Unknown]
